FAERS Safety Report 10153920 (Version 2)
Quarter: 2014Q2

REPORT INFORMATION
  Report Type: Spontaneous
  Country: US (occurrence: US)
  Receive Date: 20140506
  Receipt Date: 20140522
  Transmission Date: 20141212
  Serious: Yes (Hospitalization)
  Sender: FDA-Public Use
  Company Number: US-SHIRE-US201401344

PATIENT
  Age: 5 Year
  Sex: Male
  Weight: 21.77 kg

DRUGS (3)
  1. VYVANSE [Suspect]
     Indication: ATTENTION DEFICIT/HYPERACTIVITY DISORDER
     Dosage: 40 MG, UNKNOWN
     Route: 048
     Dates: start: 20140318, end: 20140404
  2. VYVANSE [Suspect]
     Dosage: 20 MG, 1X/DAY:QD
     Route: 048
     Dates: start: 20140310, end: 20140317
  3. CLONIDINE [Suspect]
     Indication: INSOMNIA
     Dosage: UNK, UNKNOWN
     Route: 065
     Dates: start: 2014

REACTIONS (4)
  - Substance-induced psychotic disorder [Recovered/Resolved]
  - Hypophagia [Recovering/Resolving]
  - Fluid intake reduced [Recovering/Resolving]
  - Off label use [Recovered/Resolved]
